FAERS Safety Report 21076093 (Version 2)
Quarter: 2022Q3

REPORT INFORMATION
  Report Type: Spontaneous
  Country: ES (occurrence: ES)
  Receive Date: 20220713
  Receipt Date: 20220726
  Transmission Date: 20221027
  Serious: Yes (Hospitalization, Other)
  Sender: FDA-Public Use
  Company Number: None

PATIENT
  Age: 66 Year
  Sex: Female

DRUGS (10)
  1. ZOLEDRONIC ACID [Suspect]
     Active Substance: ZOLEDRONIC ACID
     Indication: Osteoporosis
     Dosage: 5 MG
     Dates: start: 20220602
  2. ACETAMINOPHEN\TRAMADOL HYDROCHLORIDE [Concomitant]
     Active Substance: ACETAMINOPHEN\TRAMADOL HYDROCHLORIDE
     Indication: Pain
     Dosage: UNK
     Route: 048
     Dates: start: 20220602
  3. FOSFOCINA [FOSFOMYCIN] [Concomitant]
     Indication: Dysuria
     Dosage: 500 MG, 3X/DAY (EVERY 8H)
     Route: 048
     Dates: start: 20220611
  4. OMEPRAZOL MABO [Concomitant]
     Indication: Duodenitis
     Route: 048
     Dates: start: 20190701
  5. HYDROCHLOROTHIAZIDE\IRBESARTAN [Concomitant]
     Active Substance: HYDROCHLOROTHIAZIDE\IRBESARTAN
     Indication: Essential hypertension
     Route: 048
     Dates: start: 20081105
  6. METAMIZOLE MAGNESIUM [Concomitant]
     Active Substance: METAMIZOLE MAGNESIUM
     Indication: Pain
     Dosage: 575 MG, 3X/DAY  (EVERY 8H)
     Route: 048
     Dates: start: 20220611
  7. PARACETAMOL CINFA [Concomitant]
     Indication: Pain
     Dosage: 1 G, 3X/DAY (EVERY 8H)
     Route: 048
     Dates: start: 20220602
  8. METFORMIN\SITAGLIPTIN [Concomitant]
     Active Substance: METFORMIN\SITAGLIPTIN
     Indication: Type 2 diabetes mellitus
     Route: 048
     Dates: start: 20211215
  9. ATORVASTATIN CALCIUM\EZETIMIBE [Concomitant]
     Active Substance: ATORVASTATIN CALCIUM\EZETIMIBE
     Indication: Hyperlipidaemia
     Dosage: 1 DF, DAILY
     Route: 048
     Dates: start: 20170602
  10. BISOPROLOL FUMARATE [Concomitant]
     Active Substance: BISOPROLOL FUMARATE
     Indication: Tobacco abuse
     Dosage: 2.5 MG
     Route: 048
     Dates: start: 20220507

REACTIONS (1)
  - Renal tubular necrosis [Recovering/Resolving]

NARRATIVE: CASE EVENT DATE: 20220613
